FAERS Safety Report 22228180 (Version 1)
Quarter: 2023Q2

REPORT INFORMATION
  Report Type: Spontaneous
  Country: US (occurrence: None)
  Receive Date: 20230418
  Receipt Date: 20230418
  Transmission Date: 20230722
  Serious: Yes (Other)
  Sender: FDA-Public Use
  Company Number: None

PATIENT
  Sex: Female

DRUGS (6)
  1. GEODON [Suspect]
     Active Substance: ZIPRASIDONE HYDROCHLORIDE\ZIPRASIDONE MESYLATE
     Indication: Psychotic disorder
     Dates: start: 20210610, end: 20220501
  2. INSULIN NOS [Concomitant]
     Active Substance: INSULIN NOS
  3. LITHIUM [Concomitant]
     Active Substance: LITHIUM
  4. LAMICTAL [Concomitant]
     Active Substance: LAMOTRIGINE
  5. GABAPENTIN [Concomitant]
     Active Substance: GABAPENTIN
  6. LEVOTHYROXINE [Concomitant]
     Active Substance: LEVOTHYROXINE

REACTIONS (1)
  - Seizure [None]

NARRATIVE: CASE EVENT DATE: 20220115
